FAERS Safety Report 7320176-6 (Version None)
Quarter: 2011Q1

REPORT INFORMATION
  Report Type: 
  Country: None (occurrence: None)
  Receive Date: 20110228
  Receipt Date: 20110216
  Transmission Date: 20110831
  Serious: Yes (Other)
  Sender: FDA-Public Use
  Company Number: PHHY2011FR13807

PATIENT
  Age: 51 Year
  Sex: Female

DRUGS (3)
  1. AMLOR [Concomitant]
     Indication: HYPERTENSION
     Dosage: 5 MG, UNK
  2. RASILEZ [Suspect]
     Indication: HYPERTENSION
     Dosage: 150 MG, UNK
     Route: 048
  3. AMLOR [Concomitant]
     Dosage: 10 MG, UNK

REACTIONS (3)
  - UTERINE LEIOMYOMA [None]
  - MENOPAUSE [None]
  - HOT FLUSH [None]
